FAERS Safety Report 4923786-6 (Version None)
Quarter: 2006Q1

REPORT INFORMATION
  Report Type: 
  Country: None (occurrence: None)
  Receive Date: 20060227
  Receipt Date: 20050324
  Transmission Date: 20060701
  Serious: Yes (Hospitalization)
  Sender: FDA-Public Use
  Company Number: US-MERCK-0503USA04681

PATIENT
  Age: 63 Year
  Sex: Female
  Weight: 119 kg

DRUGS (2)
  1. VIOXX [Suspect]
     Indication: OSTEOPOROSIS
     Route: 048
     Dates: start: 19990101, end: 20040301
  2. VIOXX [Suspect]
     Indication: ARTHRITIS
     Route: 048
     Dates: start: 19990101, end: 20040301

REACTIONS (9)
  - ADENOMA BENIGN [None]
  - ANXIETY [None]
  - ARTHROPATHY [None]
  - DEPRESSION [None]
  - GASTRIC DISORDER [None]
  - GASTROINTESTINAL HAEMORRHAGE [None]
  - HEAD INJURY [None]
  - HEADACHE [None]
  - OPTIC NERVE DISORDER [None]
